FAERS Safety Report 17616244 (Version 2)
Quarter: 2024Q1

REPORT INFORMATION
  Report Type: Spontaneous
  Country: US (occurrence: US)
  Receive Date: 20200402
  Receipt Date: 20240307
  Transmission Date: 20240410
  Serious: Yes (Hospitalization, Other)
  Sender: FDA-Public Use
  Company Number: US-VERTEX PHARMACEUTICALS-2020-007302

PATIENT
  Age: 23 Year
  Sex: Male

DRUGS (7)
  1. TRIKAFTA [Suspect]
     Active Substance: ELEXACAFTOR\IVACAFTOR\TEZACAFTOR
     Indication: Cystic fibrosis
     Dosage: 200MG ELEXACAFTOR/100MG TEZACAFTOR/150MG IVACAFTOR AM AND 150MG IVACAFTOR PM
     Route: 048
     Dates: start: 20191126
  2. FLUTICASONE PROPIONATE\SALMETEROL XINAFOATE [Concomitant]
     Active Substance: FLUTICASONE PROPIONATE\SALMETEROL XINAFOATE
  3. ZENPEP [Concomitant]
     Active Substance: PANCRELIPASE AMYLASE\PANCRELIPASE LIPASE\PANCRELIPASE PROTEASE
  4. URSODIOL [Concomitant]
     Active Substance: URSODIOL
  5. PHYTONADIONE [Concomitant]
     Active Substance: PHYTONADIONE
  6. PULMOZYME [Concomitant]
     Active Substance: DORNASE ALFA
  7. TOBRAMYCIN [Concomitant]
     Active Substance: TOBRAMYCIN

REACTIONS (2)
  - Endocarditis [Recovered/Resolved]
  - Intracardiac thrombus [Unknown]

NARRATIVE: CASE EVENT DATE: 20200304
